FAERS Safety Report 7499308-5 (Version None)
Quarter: 2011Q2

REPORT INFORMATION
  Report Type: 
  Country: None (occurrence: None)
  Receive Date: 20110524
  Receipt Date: 20110520
  Transmission Date: 20111010
  Serious: Yes (Life-Threatening, Hospitalization)
  Sender: FDA-Public Use
  Company Number: DE-SANOFI-AVENTIS-2011SA031470

PATIENT
  Age: 62 Year
  Sex: Male

DRUGS (4)
  1. DOCETAXEL [Suspect]
     Route: 041
     Dates: start: 20101027, end: 20101027
  2. FLUOROURACIL [Suspect]
     Route: 041
     Dates: start: 20101027, end: 20101027
  3. LEUCOVORIN CALCIUM [Suspect]
     Route: 042
     Dates: start: 20101027, end: 20101027
  4. OXALIPLATIN [Suspect]
     Route: 041
     Dates: start: 20101027, end: 20101027

REACTIONS (5)
  - VOMITING [None]
  - GASTRIC CANCER [None]
  - NEOPLASM PROGRESSION [None]
  - GENERAL PHYSICAL HEALTH DETERIORATION [None]
  - GASTRIC STENOSIS [None]
